FAERS Safety Report 9705516 (Version 2)
Quarter: 2013Q4

REPORT INFORMATION
  Report Type: Spontaneous
  Country: US (occurrence: US)
  Receive Date: 20131122
  Receipt Date: 20131223
  Transmission Date: 20140711
  Serious: No
  Sender: FDA-Public Use
  Company Number: US-PFIZER INC-2013332896

PATIENT
  Age: 48 Year
  Sex: Male

DRUGS (6)
  1. XELJANZ [Suspect]
     Indication: RHEUMATOID ARTHRITIS
     Dosage: 5 MG, DAILY
     Route: 048
     Dates: start: 20130701
  2. FOLIC ACID [Concomitant]
     Dosage: UNK
  3. PREDNISONE [Concomitant]
     Indication: RHEUMATOID ARTHRITIS
     Dosage: 20 MG, DAILY
     Route: 048
  4. HYDROCODONE [Concomitant]
     Indication: PAIN
     Dosage: 5/325; 2 Q12 H
     Route: 048
  5. CELEBREX [Concomitant]
     Dosage: UNK
  6. NOVOLOG [Concomitant]
     Indication: DIABETES MELLITUS
     Dosage: 70/30; BID BEFORE MEALS

REACTIONS (2)
  - Injury [Unknown]
  - Wound [Recovering/Resolving]
